FAERS Safety Report 6451522-3 (Version None)
Quarter: 2009Q4

REPORT INFORMATION
  Report Type: 
  Country: None (occurrence: None)
  Receive Date: 20091123
  Receipt Date: 20090518
  Transmission Date: 20100525
  Serious: No
  Sender: FDA-Public Use
  Company Number: US-BRISTOL-MYERS SQUIBB COMPANY-14627467

PATIENT
  Age: 72 Year
  Sex: Female
  Weight: 67 kg

DRUGS (24)
  1. CARBOPLATIN [Suspect]
     Indication: SMALL CELL LUNG CANCER STAGE UNSPECIFIED
     Dosage: PREVIOUSLY TREATED ON 27MAY2004.
     Route: 042
     Dates: start: 20090417
  2. ETOPOSIDE [Suspect]
  3. VENOFER [Suspect]
     Dates: end: 20090504
  4. ALOXI [Concomitant]
     Indication: PREMEDICATION
     Route: 042
  5. DECADRON [Concomitant]
     Indication: PREMEDICATION
     Route: 042
  6. ARANESP [Concomitant]
     Dates: end: 20090424
  7. VITAMIN B-12 [Concomitant]
     Route: 030
     Dates: start: 20090416
  8. REGLAN [Concomitant]
  9. XANAX [Concomitant]
  10. CRESTOR [Concomitant]
  11. NEXIUM [Concomitant]
  12. SINGULAIR [Concomitant]
  13. CITALOPRAM HYDROBROMIDE [Concomitant]
  14. PLAVIX [Concomitant]
     Route: 048
  15. POTASSIUM CHLORIDE [Concomitant]
  16. ASPIRIN [Concomitant]
  17. CARAFATE [Concomitant]
  18. ATIVAN [Concomitant]
  19. CALTRATE [Concomitant]
  20. COMBIVENT [Concomitant]
     Route: 055
  21. ATENOLOL [Concomitant]
  22. DECLOMYCIN [Concomitant]
  23. ZYPREXA [Concomitant]
  24. HYOMAX-SR [Concomitant]

REACTIONS (1)
  - DEAFNESS [None]
